FAERS Safety Report 9870144 (Version 1)
Quarter: 2014Q1

REPORT INFORMATION
  Report Type: Spontaneous
  Country: US (occurrence: None)
  Receive Date: 20140204
  Receipt Date: 20140204
  Transmission Date: 20141002
  Serious: Yes (Death, Other)
  Sender: FDA-Public Use
  Company Number: None

PATIENT
  Age: 76 Year
  Sex: Female
  Weight: 45.36 kg

DRUGS (1)
  1. PHENERGAN [Suspect]

REACTIONS (5)
  - Drug interaction [None]
  - Speech disorder [None]
  - Hypopnoea [None]
  - Respiratory distress [None]
  - Pulmonary embolism [None]
